FAERS Safety Report 16373430 (Version 2)
Quarter: 2019Q2

REPORT INFORMATION
  Report Type: Spontaneous
  Country: FI (occurrence: FI)
  Receive Date: 20190530
  Receipt Date: 20190621
  Transmission Date: 20190711
  Serious: Yes (Other)
  Sender: FDA-Public Use
  Company Number: FI-NAPPMUNDI-GBR-2019-0066311

PATIENT
  Age: 44 Year
  Sex: Female

DRUGS (24)
  1. OXYNORM [Concomitant]
     Active Substance: OXYCODONE HYDROCHLORIDE
  2. CYMBALTA [Concomitant]
     Active Substance: DULOXETINE HYDROCHLORIDE
  3. PANADOL [Concomitant]
     Active Substance: ACETAMINOPHEN
  4. KLOTRIPTYL                         /00033501/ [Concomitant]
  5. LAMICTAL [Concomitant]
     Active Substance: LAMOTRIGINE
  6. TRIPTYL [Concomitant]
     Active Substance: AMITRIPTYLINE HYDROCHLORIDE
  7. VOLTAREN [Concomitant]
     Active Substance: DICLOFENAC SODIUM
  8. LYRICA [Concomitant]
     Active Substance: PREGABALIN
  9. NEURONTIN [Concomitant]
     Active Substance: GABAPENTIN
     Dosage: UNK
  10. VENLAFAXIN [Concomitant]
     Active Substance: VENLAFAXINE HYDROCHLORIDE
  11. PANACOD [Concomitant]
     Active Substance: ACETAMINOPHEN\CODEINE PHOSPHATE
  12. TRAMAL [Concomitant]
     Active Substance: TRAMADOL
  13. LITALGIN                           /00320201/ [Concomitant]
  14. NORGESIC                           /00040301/ [Interacting]
     Active Substance: ASPIRIN\CAFFEINE\ORPHENADRINE\PHENACETIN
     Indication: NEURALGIA
     Dosage: UNK, (STRENGTH 35 MG/ 450 MG)
     Route: 065
     Dates: start: 2013
  15. SOMAC [Concomitant]
     Active Substance: PANTOPRAZOLE SODIUM
  16. NEURONTIN [Concomitant]
     Active Substance: GABAPENTIN
     Dosage: UNK
     Dates: end: 2014
  17. ARCOXIA [Concomitant]
     Active Substance: ETORICOXIB
  18. NORSPAN [Suspect]
     Active Substance: BUPRENORPHINE
     Indication: NEURALGIA
     Dosage: 10 MCG, Q1H
     Route: 062
  19. IBUMAX [Concomitant]
     Active Substance: IBUPROFEN
  20. NAPROMETIN [Concomitant]
  21. NORSPAN [Interacting]
     Active Substance: BUPRENORPHINE
     Dosage: 5 MCG, Q1H (STRENGTH 5MG)
     Route: 062
     Dates: start: 2013
  22. HYDROCORTISON                      /00028601/ [Concomitant]
     Active Substance: HYDROCORTISONE
     Indication: PROPHYLAXIS
     Dosage: 10 MG/ML, UNK
     Route: 003
  23. MOTIVAL                            /00226501/ [Concomitant]
  24. RIVATRIL [Concomitant]
     Active Substance: CLONAZEPAM

REACTIONS (28)
  - Somnolence [Unknown]
  - Depression [Unknown]
  - Hallucination [Unknown]
  - Wrong technique in product usage process [Unknown]
  - Pruritus generalised [Unknown]
  - Application site rash [Recovered/Resolved]
  - Decreased appetite [Unknown]
  - Potentiating drug interaction [Unknown]
  - Respiratory disorder [Unknown]
  - Tinnitus [Unknown]
  - Disturbance in attention [Unknown]
  - Abdominal pain [Unknown]
  - Hiccups [Unknown]
  - Mood swings [Unknown]
  - Application site pain [Unknown]
  - Nightmare [Unknown]
  - Agitation [Unknown]
  - Muscle twitching [Unknown]
  - Weight decreased [Unknown]
  - Ear pain [Unknown]
  - Libido decreased [Unknown]
  - Mental disorder [Unknown]
  - Pruritus generalised [Recovering/Resolving]
  - Constipation [Unknown]
  - Anxiety [Unknown]
  - Amnesia [Unknown]
  - Fatigue [Unknown]
  - Application site urticaria [Recovered/Resolved]

NARRATIVE: CASE EVENT DATE: 2013
